FAERS Safety Report 7256877-8 (Version None)
Quarter: 2011Q1

REPORT INFORMATION
  Report Type: 
  Country: None (occurrence: None)
  Receive Date: 20110129
  Receipt Date: 20100615
  Transmission Date: 20110831
  Serious: No
  Sender: FDA-Public Use
  Company Number: US-ABBOTT-10P-163-0652587-00

PATIENT
  Sex: Female
  Weight: 88.53 kg

DRUGS (3)
  1. HUMIRA [Suspect]
     Indication: PSORIASIS
     Dates: start: 20090901, end: 20100519
  2. ROBAXIN [Concomitant]
     Indication: BACK PAIN
  3. CLARITIN [Concomitant]
     Indication: HYPERSENSITIVITY

REACTIONS (5)
  - MOBILITY DECREASED [None]
  - SINUSITIS [None]
  - MUSCLE SPASMS [None]
  - INJECTION SITE PAIN [None]
  - ARTHRALGIA [None]
